FAERS Safety Report 12957932 (Version 1)
Quarter: 2016Q4

REPORT INFORMATION
  Report Type: Other
  Country: BR (occurrence: BR)
  Receive Date: 20161118
  Receipt Date: 20161118
  Transmission Date: 20170207
  Serious: Yes (Death, Congenital Anomaly)
  Sender: FDA-Public Use
  Company Number: BR--2016-BR-000004

PATIENT
  Age: 1 Day
  Sex: Male
  Weight: 1.05 kg

DRUGS (1)
  1. LOSARTAN POTASSIUM TABLETS USP, 50 MG (VIVIMED) [Suspect]
     Active Substance: LOSARTAN POTASSIUM
     Indication: EXPOSURE DURING PREGNANCY

REACTIONS (5)
  - Haemorrhage [Not Recovered/Not Resolved]
  - Cardiac arrest [Fatal]
  - Congenital renal disorder [Not Recovered/Not Resolved]
  - Delayed fontanelle closure [Not Recovered/Not Resolved]
  - Ischaemia [Recovered/Resolved with Sequelae]
